FAERS Safety Report 12115750 (Version 1)
Quarter: 2016Q1

REPORT INFORMATION
  Report Type: Spontaneous
  Country: US (occurrence: US)
  Receive Date: 20160225
  Receipt Date: 20160225
  Transmission Date: 20160526
  Serious: No
  Sender: FDA-Public Use
  Company Number: US-PFIZER INC-2016115407

PATIENT
  Age: 51 Year
  Sex: Female
  Weight: 56.25 kg

DRUGS (2)
  1. CHANTIX [Suspect]
     Active Substance: VARENICLINE TARTRATE
     Indication: SMOKING CESSATION THERAPY
     Dosage: 0.5 MG, UNK
     Dates: start: 201602, end: 201602
  2. CHANTIX [Suspect]
     Active Substance: VARENICLINE TARTRATE
     Dosage: 1 MG, 2X/DAY
     Dates: start: 201602

REACTIONS (8)
  - Irritability [Not Recovered/Not Resolved]
  - Chest discomfort [Unknown]
  - Frustration tolerance decreased [Unknown]
  - Agitation [Not Recovered/Not Resolved]
  - Headache [Unknown]
  - Anxiety [Unknown]
  - Stress [Unknown]
  - Paraesthesia [Unknown]

NARRATIVE: CASE EVENT DATE: 201602
